FAERS Safety Report 5924252-1 (Version None)
Quarter: 2008Q4

REPORT INFORMATION
  Report Type: 
  Country: None (occurrence: None)
  Receive Date: 20081020
  Receipt Date: 20081016
  Transmission Date: 20090506
  Serious: Yes (Other)
  Sender: FDA-Public Use
  Company Number: CA-WYE-G02373308

PATIENT
  Sex: Female

DRUGS (1)
  1. TIGECYCLINE [Suspect]
     Route: 042
     Dates: start: 20081001

REACTIONS (10)
  - ABDOMINAL PAIN [None]
  - ACQUIRED PORPHYRIA [None]
  - ASTHENIA [None]
  - BACK PAIN [None]
  - BLOOD PRESSURE INCREASED [None]
  - CHEST PAIN [None]
  - NAUSEA [None]
  - PALLOR [None]
  - PALPITATIONS [None]
  - TREMOR [None]
